FAERS Safety Report 7582638-6 (Version None)
Quarter: 2011Q2

REPORT INFORMATION
  Report Type: 
  Country: None (occurrence: None)
  Receive Date: 20110630
  Receipt Date: 20110627
  Transmission Date: 20111010
  Serious: Yes (Other)
  Sender: FDA-Public Use
  Company Number: US-PFIZER INC-2011142619

PATIENT
  Sex: Female
  Weight: 88.435 kg

DRUGS (12)
  1. CLONAZEPAM [Concomitant]
     Dosage: 1 MG, DAILY
  2. FENOFIBRIC ACID [Concomitant]
     Dosage: 135 MG, DAILY
     Route: 048
  3. GABAPENTIN [Concomitant]
     Dosage: UNK
  4. MULTI-VITAMINS [Concomitant]
     Dosage: UNK
  5. CHANTIX [Suspect]
     Indication: SMOKING CESSATION THERAPY
     Dosage: UNK
     Route: 048
     Dates: start: 20110601
  6. ACIPHEX [Concomitant]
     Dosage: 30 MG, DAILY
     Route: 048
  7. CELEXA [Concomitant]
     Dosage: 40 MG, DAILY
  8. ABILIFY [Concomitant]
     Dosage: UNK
  9. SIMVASTATIN [Concomitant]
     Dosage: 40 MG, DAILY
  10. SUCRALFATE [Concomitant]
     Dosage: 1 MG, 3X/DAY
  11. ATROPINE [Concomitant]
     Dosage: 1 MG, 2X/DAY
  12. SYNTHROID [Concomitant]
     Dosage: 112 UG, DAILY
     Route: 048

REACTIONS (3)
  - DYSPNOEA [None]
  - MUSCULOSKELETAL CHEST PAIN [None]
  - TONGUE DISORDER [None]
